FAERS Safety Report 24373202 (Version 2)
Quarter: 2024Q4

REPORT INFORMATION
  Report Type: Spontaneous
  Country: FR (occurrence: FR)
  Receive Date: 20240927
  Receipt Date: 20241014
  Transmission Date: 20250114
  Serious: Yes (Hospitalization, Other)
  Sender: SANOFI AVENTIS
  Company Number: None

PATIENT
  Age: 69 Year
  Sex: Male
  Weight: 109 kg

DRUGS (11)
  1. KARDEGIC [Suspect]
     Active Substance: ASPIRIN DL-LYSINE
     Indication: Platelet aggregation inhibition
     Dosage: 75 MG, QD (POWDER FOR ORAL SOLUTION IN SINGLE-DOSE SACHETS)
     Route: 048
     Dates: start: 20180315, end: 20180405
  2. PREDNISONE [Suspect]
     Active Substance: PREDNISONE
     Indication: Gout
     Dosage: 30 MG, QD (SCORED TABLETS)
     Route: 048
     Dates: start: 20180315, end: 20180405
  3. LOVENOX [Suspect]
     Active Substance: ENOXAPARIN SODIUM
     Indication: Anticoagulant therapy
     Dosage: 4000 IU, QD
     Route: 058
     Dates: start: 20180315, end: 20180405
  4. ARTOTEC [Suspect]
     Active Substance: DICLOFENAC SODIUM\MISOPROSTOL
     Indication: Arthralgia
     Dosage: 2 DF, QD
     Route: 048
     Dates: start: 20180315, end: 20180315
  5. FOLIC ACID [Concomitant]
     Active Substance: FOLIC ACID
     Indication: Product used for unknown indication
     Dosage: UNK
  6. FOLIC ACID [Concomitant]
     Active Substance: FOLIC ACID
  7. ACETAMINOPHEN [Concomitant]
     Active Substance: ACETAMINOPHEN
     Indication: Product used for unknown indication
     Dosage: UNK
  8. URION [Concomitant]
     Indication: Product used for unknown indication
     Dosage: UNK
  9. COLCHICINE [Concomitant]
     Active Substance: COLCHICINE
     Indication: Product used for unknown indication
     Dosage: UNK
  10. AMLODIPINE [Concomitant]
     Active Substance: AMLODIPINE BESYLATE
     Indication: Product used for unknown indication
     Dosage: UNK
  11. AMLODIPINE [Concomitant]
     Active Substance: AMLODIPINE BESYLATE

REACTIONS (2)
  - Peptic ulcer [Recovered/Resolved]
  - Gastrointestinal haemorrhage [Recovered/Resolved]

NARRATIVE: CASE EVENT DATE: 20180402
